FAERS Safety Report 8533976-1 (Version None)
Quarter: 2012Q3

REPORT INFORMATION
  Report Type: 
  Country: None (occurrence: None)
  Receive Date: 20120724
  Receipt Date: 20120719
  Transmission Date: 20120928
  Serious: Yes (Other)
  Sender: FDA-Public Use
  Company Number: US-ROCHE-1090689

PATIENT
  Sex: Male
  Weight: 111 kg

DRUGS (8)
  1. NEUPOGEN [Concomitant]
     Dosage: 3000/0.5 UG/ML
     Dates: start: 20111212, end: 20120130
  2. ONDANSETRON [Concomitant]
     Dates: start: 20120103, end: 20120401
  3. VALTREX [Concomitant]
     Dates: start: 20111128, end: 20120130
  4. FLUCONAZOLE [Concomitant]
     Dates: start: 20111114, end: 20120130
  5. MABTHERA [Suspect]
     Indication: B-CELL LYMPHOMA
     Route: 042
     Dates: start: 20110606, end: 20110613
  6. OXYCODONE HCL AND ACETAMINOPHEN [Concomitant]
     Dates: start: 20110603
  7. PERCOCET [Concomitant]
  8. INVESTIGATIONAL SURVIVIN INHIBITOR NOS [Suspect]
     Indication: LYMPHOMA
     Route: 042
     Dates: start: 20111227, end: 20120103

REACTIONS (5)
  - MYALGIA [None]
  - HEADACHE [None]
  - OEDEMA PERIPHERAL [None]
  - MYOSITIS [None]
  - RASH PAPULAR [None]
